APPROVED DRUG PRODUCT: DEPO-PROVERA
Active Ingredient: MEDROXYPROGESTERONE ACETATE
Strength: 400MG/ML
Dosage Form/Route: INJECTABLE;INJECTION
Application: N012541 | Product #003
Applicant: PFIZER INC
Approved: Approved Prior to Jan 1, 1982 | RLD: Yes | RS: No | Type: DISCN